FAERS Safety Report 5675026-0 (Version None)
Quarter: 2008Q1

REPORT INFORMATION
  Report Type: 
  Country: None (occurrence: None)
  Receive Date: 20080320
  Receipt Date: 20080310
  Transmission Date: 20080703
  Serious: Yes (Other)
  Sender: FDA-Public Use
  Company Number: US-PFIZER INC-2008022875

PATIENT
  Sex: Female
  Weight: 83.5 kg

DRUGS (12)
  1. CHANTIX [Suspect]
     Indication: SMOKING CESSATION THERAPY
     Dates: start: 20070301, end: 20070601
  2. ZYRTEC [Concomitant]
  3. XANAX [Concomitant]
  4. BELLADONNA AND DERIVATIVES [Concomitant]
  5. FIORINAL [Concomitant]
  6. HYDROCODONE BITARTRATE [Concomitant]
  7. OS-CAL [Concomitant]
  8. CENTRUM SILVER [Concomitant]
  9. LEVOSALBUTAMOL [Concomitant]
  10. ADVAIR DISKUS 100/50 [Concomitant]
  11. ALBUTEROL SULFATE/IPRATROPIUM BROMIDE [Concomitant]
  12. URSODIOL [Concomitant]

REACTIONS (6)
  - ANGER [None]
  - BILIARY CIRRHOSIS [None]
  - DECREASED INTEREST [None]
  - DIABETES MELLITUS [None]
  - FRUSTRATION [None]
  - MALAISE [None]
